FAERS Safety Report 4977499-5 (Version None)
Quarter: 2006Q2

REPORT INFORMATION
  Report Type: 
  Country: None (occurrence: None)
  Receive Date: 20060420
  Receipt Date: 20060410
  Transmission Date: 20061013
  Serious: Yes (Other)
  Sender: FDA-Public Use
  Company Number: US-JNJFOC-20060203385

PATIENT
  Sex: Female

DRUGS (1)
  1. REMICADE [Suspect]
     Dosage: 2 DOSES ADMINISTERED DURING PREGNANCY

REACTIONS (1)
  - PREMATURE BABY [None]
